FAERS Safety Report 4528080-3 (Version None)
Quarter: 2004Q4

REPORT INFORMATION
  Report Type: 
  Country: None (occurrence: None)
  Receive Date: 20041124
  Receipt Date: 20031210
  Transmission Date: 20050328
  Serious: Yes (Life-Threatening, Hospitalization, Other)
  Sender: FDA-Public Use
  Company Number: 2003006652

PATIENT
  Age: 67 Year
  Sex: Male
  Weight: 70.3075 kg

DRUGS (14)
  1. TIKOSYN [Suspect]
     Indication: CARDIAC FAILURE CONGESTIVE
     Dosage: 250 MCG (DAILY), ORAL
     Route: 048
     Dates: start: 20021205
  2. ALPRAZOLAM [Concomitant]
  3. DIGOXIN [Concomitant]
  4. FUROSEMIDE [Concomitant]
  5. LEVOTHYROXINE SODIUM [Concomitant]
  6. ATORVASTATIN (ATORVASTATIN) [Concomitant]
  7. LISINOPRIL [Concomitant]
  8. METOPROLOL TARTRATE [Concomitant]
  9. MEXILETINE HCL [Concomitant]
  10. PAROXETINE HCL [Concomitant]
  11. POTASSIUM CHLORIDE [Concomitant]
  12. ASPIRIN [Concomitant]
  13. MAGNESIUM OXIDE (MAGNESIUM OXIDE) [Concomitant]
  14. TOCOPHEROL (TOCOPHEROL) [Concomitant]

REACTIONS (5)
  - ARRHYTHMIA [None]
  - CARDIAC FAILURE [None]
  - DYSPNOEA [None]
  - PNEUMONIA [None]
  - WEIGHT DECREASED [None]
